FAERS Safety Report 8101729-4 (Version None)
Quarter: 2012Q1

REPORT INFORMATION
  Report Type: 
  Country: None (occurrence: None)
  Receive Date: 20120131
  Receipt Date: 20120123
  Transmission Date: 20120608
  Serious: Yes (Hospitalization, Other)
  Sender: FDA-Public Use
  Company Number: PHEH2012US001735

PATIENT
  Sex: Female

DRUGS (11)
  1. SYNTHROID [Concomitant]
     Dosage: UNK
  2. BACLOFEN [Concomitant]
     Dosage: UNK
  3. DONEPEZIL HCL [Concomitant]
     Dosage: UNK UKN, UNK
  4. FUROSEMIDE [Concomitant]
     Dosage: UNK
  5. OMEPRAZOLE [Concomitant]
  6. NAMENDA [Concomitant]
  7. CELEBREX [Concomitant]
  8. CITALOPRAM [Concomitant]
  9. GILENYA [Suspect]
     Indication: MULTIPLE SCLEROSIS
     Dosage: 0.5 MG, QD
     Route: 048
     Dates: start: 20120111
  10. CALCIUM WITH VITAMIN D [Concomitant]
  11. RANITIDINE [Concomitant]
     Dosage: UNK

REACTIONS (3)
  - PULMONARY EMBOLISM [None]
  - ARTHRITIS [None]
  - CHEST PAIN [None]
